FAERS Safety Report 12210248 (Version 4)
Quarter: 2016Q2

REPORT INFORMATION
  Report Type: Report from Study
  Country: US (occurrence: US)
  Receive Date: 20160325
  Receipt Date: 20160617
  Transmission Date: 20160815
  Serious: No
  Sender: FDA-Public Use
  Company Number: US-AMGEN-USASL2016036140

PATIENT
  Age: 26 Year
  Sex: Female

DRUGS (2)
  1. ENBREL [Suspect]
     Active Substance: ETANERCEPT
     Indication: RHEUMATOID ARTHRITIS
     Dosage: 50 MG, QWK
     Route: 065
     Dates: start: 20160318
  2. PREDNISONE. [Concomitant]
     Active Substance: PREDNISONE
     Dosage: UNK
     Route: 065
     Dates: end: 201604

REACTIONS (19)
  - Nausea [Not Recovered/Not Resolved]
  - Diarrhoea [Not Recovered/Not Resolved]
  - Hypoaesthesia [Unknown]
  - Concussion [Unknown]
  - Arthralgia [Not Recovered/Not Resolved]
  - Sinusitis [Unknown]
  - Injection site urticaria [Recovered/Resolved]
  - Fall [Unknown]
  - Back pain [Unknown]
  - Injection site discomfort [Recovered/Resolved]
  - Pain in extremity [Unknown]
  - Condition aggravated [Unknown]
  - Neck pain [Unknown]
  - No therapeutic response [Unknown]
  - Injection site erythema [Recovered/Resolved]
  - Injection site pruritus [Recovered/Resolved]
  - Joint swelling [Unknown]
  - Injection site warmth [Recovering/Resolving]
  - Injection site swelling [Recovered/Resolved]

NARRATIVE: CASE EVENT DATE: 2016
